FAERS Safety Report 8693839 (Version 6)
Quarter: 2013Q1

REPORT INFORMATION
  Report Type: Report from Study
  Country: FR (occurrence: FR)
  Receive Date: 20120731
  Receipt Date: 20130102
  Transmission Date: 20140127
  Serious: Yes (Hospitalization, Other)
  Sender: FDA-Public Use
  Company Number: FR-CELGENEUS-056-21880-12072355

PATIENT
  Age: 42 Year
  Sex: 0
  Weight: 56 kg

DRUGS (6)
  1. REVLIMID [Suspect]
     Indication: KAPOSI^S SARCOMA
     Dosage: 25 MILLIGRAM
     Route: 048
     Dates: start: 20120521, end: 20120725
  2. REVLIMID [Suspect]
     Dosage: 15 MILLIGRAM
     Route: 048
     Dates: start: 20120731
  3. KIVEXA [Concomitant]
     Indication: HIV INFECTION
     Route: 065
     Dates: start: 20090824
  4. REYATAZ [Concomitant]
     Indication: HIV INFECTION
     Dosage: 300 MILLIGRAM
     Route: 065
     Dates: start: 20090824
  5. NORVIR [Concomitant]
     Indication: HIV INFECTION
     Dosage: 100 MILLIGRAM
     Route: 065
     Dates: start: 20090824
  6. ASPIRINE [Concomitant]
     Indication: THROMBOSIS PROPHYLAXIS
     Dosage: 75 MILLIGRAM
     Route: 065
     Dates: start: 20120521

REACTIONS (2)
  - Neutropenia [Recovered/Resolved]
  - Castleman^s disease [Not Recovered/Not Resolved]
